FAERS Safety Report 18730066 (Version 1)
Quarter: 2021Q1

REPORT INFORMATION
  Report Type: Spontaneous
  Country: US (occurrence: US)
  Receive Date: 20210112
  Receipt Date: 20210112
  Transmission Date: 20210419
  Serious: Yes (Other)
  Sender: FDA-Public Use
  Company Number: US-UPSHER-SMITH LABORATORIES, LLC-2020USL02550

PATIENT
  Age: 52 Year
  Sex: Male

DRUGS (1)
  1. SUMATRIPTAN SUCCINATE. [Suspect]
     Active Substance: SUMATRIPTAN SUCCINATE
     Indication: MIGRAINE
     Dosage: 8?10 TIMES PER MONTH
     Route: 065

REACTIONS (3)
  - Nephrosclerosis [Unknown]
  - Renal atrophy [Unknown]
  - Renal tubular injury [Recovering/Resolving]
